FAERS Safety Report 6612326-1 (Version None)
Quarter: 2010Q1

REPORT INFORMATION
  Report Type: 
  Country: None (occurrence: None)
  Receive Date: 20100302
  Receipt Date: 20100302
  Transmission Date: 20100710
  Serious: Yes (Life-Threatening)
  Sender: FDA-Public Use
  Company Number: None

PATIENT
  Age: 43 Year
  Sex: Male

DRUGS (2)
  1. DIHYDROERGOTAMINE MESYLATE [Suspect]
     Indication: MIGRAINE
     Dosage: 1 MG 2 DOSES IV
     Route: 042
     Dates: start: 20100214, end: 20100215
  2. ISENTRESS [Suspect]
     Indication: HIV INFECTION
     Dosage: 400 MG TWICE DAILY PO
     Route: 048
     Dates: start: 20100101, end: 20100226

REACTIONS (3)
  - ARTERIOSPASM CORONARY [None]
  - MYOCARDIAL INFARCTION [None]
  - PARAESTHESIA [None]
